FAERS Safety Report 6268393-0 (Version None)
Quarter: 2009Q3

REPORT INFORMATION
  Report Type: 
  Country: None (occurrence: None)
  Receive Date: 20090715
  Receipt Date: 20090702
  Transmission Date: 20100115
  Serious: Yes (Hospitalization)
  Sender: FDA-Public Use
  Company Number: US-ROCHE-642620

PATIENT
  Sex: Male

DRUGS (2)
  1. PEGASYS [Suspect]
     Indication: HEPATITIS C
     Dosage: INTERRUPTED FOR A COUPLE OF MONTHS.
     Route: 065
     Dates: start: 20040723, end: 20060727
  2. COPEGUS [Suspect]
     Indication: HEPATITIS C
     Dosage: INTERRUPTED FOR A COUPLE OF MONTHS.
     Route: 065
     Dates: start: 20040723, end: 20060727

REACTIONS (4)
  - ANAEMIA [None]
  - ARTHRALGIA [None]
  - CORONARY ARTERIAL STENT INSERTION [None]
  - TINNITUS [None]
